FAERS Safety Report 6729002-7 (Version None)
Quarter: 2010Q2

REPORT INFORMATION
  Report Type: 
  Country: None (occurrence: None)
  Receive Date: 20100517
  Receipt Date: 20100315
  Transmission Date: 20101027
  Serious: No
  Sender: FDA-Public Use
  Company Number: US-ABBOTT-10P-163-0633916-00

PATIENT
  Sex: Female
  Weight: 69.008 kg

DRUGS (19)
  1. SIMCOR [Suspect]
     Indication: ISCHAEMIC HEART DISEASE PROPHYLAXIS
     Dosage: 500/20 MG EVERY NIGHT
     Dates: start: 20100302
  2. SIMCOR [Suspect]
     Indication: THROMBOSIS PROPHYLAXIS
  3. SIMCOR [Suspect]
     Indication: CEREBROVASCULAR ACCIDENT PROPHYLAXIS
  4. CLONAZEPAM [Concomitant]
     Indication: INSOMNIA
  5. DARVOCET [Concomitant]
     Indication: PAIN
  6. ALLEGRA D 24 HOUR [Concomitant]
     Indication: HYPERSENSITIVITY
  7. HYOMAX SR [Concomitant]
     Indication: ABDOMINAL PAIN UPPER
  8. USANA VITAMINS [Concomitant]
     Indication: DRUG USE FOR UNKNOWN INDICATION
  9. OMEGA ANTIOXIDANT [Concomitant]
     Indication: DRUG USE FOR UNKNOWN INDICATION
  10. CHELATED MINERALS [Concomitant]
     Indication: DRUG USE FOR UNKNOWN INDICATION
  11. PROSCARA CHONDROITIN [Concomitant]
     Indication: DRUG USE FOR UNKNOWN INDICATION
  12. HEPASIL [Concomitant]
     Indication: DETOXIFICATION
  13. VITAMIN D [Concomitant]
     Indication: DRUG USE FOR UNKNOWN INDICATION
  14. VITAMIN A VISION EX [Concomitant]
     Indication: DRUG USE FOR UNKNOWN INDICATION
  15. BIOTIN [Concomitant]
     Indication: DRUG USE FOR UNKNOWN INDICATION
  16. CATAPLEX B [Concomitant]
     Indication: DRUG USE FOR UNKNOWN INDICATION
  17. CATAPLEX G [Concomitant]
     Indication: DRUG USE FOR UNKNOWN INDICATION
  18. CATAPLEX B12 [Concomitant]
     Indication: DRUG USE FOR UNKNOWN INDICATION
  19. VITAMIN C [Concomitant]
     Indication: DRUG USE FOR UNKNOWN INDICATION

REACTIONS (3)
  - ERYTHEMA [None]
  - PARAESTHESIA [None]
  - PRURITUS [None]
